FAERS Safety Report 17820714 (Version 1)
Quarter: 2020Q2

REPORT INFORMATION
  Report Type: Spontaneous
  Country: CH (occurrence: CH)
  Receive Date: 20200525
  Receipt Date: 20200525
  Transmission Date: 20200714
  Serious: Yes (Other)
  Sender: FDA-Public Use
  Company Number: CH-TEVA-2020-CH-1239261

PATIENT
  Age: 90 Year
  Sex: Female

DRUGS (18)
  1. AMLODIPINE [Concomitant]
     Active Substance: AMLODIPINE BESYLATE
     Dates: start: 20200504, end: 20200505
  2. ATORVASTATINE [Concomitant]
     Active Substance: ATORVASTATIN
  3. NEXIUM [Concomitant]
     Active Substance: ESOMEPRAZOLE MAGNESIUM
  4. LAXOBERON [Concomitant]
     Active Substance: SODIUM PICOSULFATE
     Dosage: AS NECESSARY
     Dates: start: 20200501
  5. CLAMOXYL (AMOXICILLIN) [Suspect]
     Active Substance: AMOXICILLIN
     Indication: ENCEPHALITIS
     Dosage: 12 GRAM DAILY;
     Route: 065
     Dates: start: 20200429
  6. DAFALGAN [Concomitant]
     Active Substance: ACETAMINOPHEN
     Dates: start: 20200428
  7. CEFTRIAXONE. [Suspect]
     Active Substance: CEFTRIAXONE
     Indication: ENCEPHALITIS
     Dosage: 4 GRAM DAILY;
     Route: 042
     Dates: start: 20200429, end: 20200430
  8. APROVEL [Concomitant]
     Active Substance: IRBESARTAN
  9. RANEXA [Concomitant]
     Active Substance: RANOLAZINE
     Dates: end: 20200430
  10. NITRODERM [Concomitant]
     Active Substance: NITROGLYCERIN
     Dates: start: 20200430
  11. CLEXANE [Concomitant]
     Active Substance: ENOXAPARIN SODIUM
     Dates: start: 20200430
  12. DORZOLAMIDE HYDROCHLORIDE AND TIMOLOL MALEATE [Concomitant]
     Active Substance: DORZOLAMIDE HYDROCHLORIDE\TIMOLOL MALEATE
  13. DISTRANEURIN [Concomitant]
     Active Substance: CLOMETHIAZOLE
     Dosage: AS NECESSARY
     Dates: start: 20200502, end: 20200504
  14. ASPIRIN CARDIO [Concomitant]
     Active Substance: ASPIRIN
  15. MEPHAMESON [Suspect]
     Active Substance: DEXAMETHASONE
     Indication: ENCEPHALITIS
     Route: 042
     Dates: start: 20200429, end: 20200430
  16. ACICLOVIR [Suspect]
     Active Substance: ACYCLOVIR
     Indication: ENCEPHALITIS
     Dosage: 1800 MILLIGRAM DAILY;
     Route: 065
     Dates: start: 20200429
  17. CALCIMAGON D3 [Concomitant]
     Active Substance: CALCIUM\CHOLECALCIFEROL
     Dates: end: 20200430
  18. PURSANA [Concomitant]
     Active Substance: FIG FRUIT OIL\SORBITOL
     Dates: start: 20200501

REACTIONS (1)
  - Confusional state [Not Recovered/Not Resolved]

NARRATIVE: CASE EVENT DATE: 20200502
